FAERS Safety Report 9044243 (Version 1)
Quarter: 2013Q1

REPORT INFORMATION
  Report Type: Report from Study
  Country: US (occurrence: US)
  Receive Date: 20130131
  Receipt Date: 20130131
  Transmission Date: 20140127
  Serious: No
  Sender: FDA-Public Use
  Company Number: US-ABBOTT-12P-163-0987344-00

PATIENT
  Sex: Male

DRUGS (4)
  1. HUMIRA [Suspect]
     Indication: PSORIASIS
     Dosage: DAY 1
     Route: 058
     Dates: start: 201208, end: 201208
  2. HUMIRA [Suspect]
     Dosage: DAY 8 AND DAY 21
     Route: 058
  3. HUMIRA [Suspect]
     Route: 058
  4. ASPIRIN [Concomitant]
     Route: 048

REACTIONS (1)
  - Rash [Recovering/Resolving]
